FAERS Safety Report 8364323-6 (Version None)
Quarter: 2012Q2

REPORT INFORMATION
  Report Type: 
  Country: None (occurrence: None)
  Receive Date: 20120516
  Receipt Date: 20120508
  Transmission Date: 20120825
  Serious: Yes (Life-Threatening)
  Sender: FDA-Public Use
  Company Number: JP-GILEAD-2012-0054993

PATIENT
  Age: 60 Year
  Sex: Female

DRUGS (17)
  1. CALCIUM CARBONATE [Concomitant]
     Indication: PROPHYLAXIS
     Route: 048
  2. PAXIL [Concomitant]
     Route: 048
  3. FUROSEMIDE [Concomitant]
     Route: 048
  4. AMBRISENTAN [Suspect]
     Indication: PULMONARY ARTERIAL HYPERTENSION
     Dosage: 2.5 MG, QD
     Route: 048
     Dates: start: 20110517, end: 20110523
  5. COTRIM [Concomitant]
     Indication: PROPHYLAXIS
     Route: 048
  6. POTASSIUM MAGNESIUM ASPARTATE [Concomitant]
     Indication: PROPHYLAXIS
     Route: 048
  7. RABEPRAZOLE SODIUM [Concomitant]
     Indication: PROPHYLAXIS
     Route: 048
  8. ZOLPIDEM [Concomitant]
     Route: 048
  9. AMOBAN [Concomitant]
     Route: 048
  10. GASMOTIN [Concomitant]
     Indication: GASTROINTESTINAL TRACT IRRITATION
     Route: 048
  11. ALFAROL [Concomitant]
     Indication: PROPHYLAXIS
     Route: 048
  12. ALDACTONE [Concomitant]
     Route: 048
  13. MAGNESIUM SULFATE [Concomitant]
     Indication: PROPHYLAXIS
     Route: 048
  14. WARFARIN SODIUM [Concomitant]
     Indication: PULMONARY ARTERIAL HYPERTENSION
     Route: 048
  15. NEORAL [Concomitant]
     Route: 048
  16. FUNGIZONE [Concomitant]
     Indication: INFECTION PROPHYLAXIS
     Route: 048
  17. MUCOSTA [Concomitant]
     Indication: PROPHYLAXIS
     Route: 048

REACTIONS (1)
  - INTERSTITIAL LUNG DISEASE [None]
